FAERS Safety Report 11357412 (Version 1)
Quarter: 2015Q3

REPORT INFORMATION
  Report Type: Spontaneous
  Country: US (occurrence: US)
  Receive Date: 20150803
  Receipt Date: 20150803
  Transmission Date: 20151125
  Serious: No
  Sender: FDA-Public Use
  Company Number: US-ELI_LILLY_AND_COMPANY-US201403002335

PATIENT
  Age: 9 Year
  Sex: Female

DRUGS (1)
  1. STRATTERA [Suspect]
     Active Substance: ATOMOXETINE HYDROCHLORIDE
     Indication: ATTENTION DEFICIT/HYPERACTIVITY DISORDER
     Dosage: 25 MG, QD
     Route: 065
     Dates: start: 201308

REACTIONS (6)
  - Abnormal dreams [Unknown]
  - Drug dose omission [Unknown]
  - Chest pain [Unknown]
  - Insomnia [Unknown]
  - Somnolence [Unknown]
  - Lip dry [Unknown]
